FAERS Safety Report 8172275-7 (Version None)
Quarter: 2012Q1

REPORT INFORMATION
  Report Type: 
  Country: None (occurrence: None)
  Receive Date: 20120229
  Receipt Date: 20120220
  Transmission Date: 20120608
  Serious: No
  Sender: FDA-Public Use
  Company Number: US-BIOGENIDEC-2011BI017304

PATIENT
  Age: 33 Year
  Sex: Female

DRUGS (1)
  1. TYSABRI [Suspect]
     Indication: MULTIPLE SCLEROSIS
     Route: 042
     Dates: start: 20110414

REACTIONS (9)
  - PAIN IN EXTREMITY [None]
  - DYSKINESIA [None]
  - SENSATION OF HEAVINESS [None]
  - MUSCLE SPASTICITY [None]
  - FATIGUE [None]
  - MUSCLE TIGHTNESS [None]
  - FLUSHING [None]
  - VERTIGO [None]
  - PARAESTHESIA [None]
